FAERS Safety Report 7833962-0 (Version None)
Quarter: 2011Q4

REPORT INFORMATION
  Report Type: 
  Country: None (occurrence: None)
  Receive Date: 20111024
  Receipt Date: 20111011
  Transmission Date: 20120403
  Serious: Yes (Hospitalization)
  Sender: FDA-Public Use
  Company Number: IT-CELGENEUS-083-21880-11090021

PATIENT
  Sex: Female

DRUGS (10)
  1. ACETAMINOPHEN [Concomitant]
     Dosage: 2 GRAM
     Route: 065
     Dates: start: 20110505
  2. ASPIRIN [Concomitant]
     Dosage: 1 TABLET
     Route: 048
     Dates: start: 20110822
  3. BACTRIM [Concomitant]
     Route: 065
     Dates: start: 20110822
  4. REVLIMID [Suspect]
     Indication: MULTIPLE MYELOMA
     Dosage: 25 MILLIGRAM
     Route: 048
     Dates: start: 20110822, end: 20110827
  5. DEXAMETHASONE [Suspect]
     Indication: MULTIPLE MYELOMA
     Dosage: 40 MILLIGRAM
     Route: 048
     Dates: start: 20110822
  6. MS CONTIN [Concomitant]
     Dosage: 20 MILLIGRAM
     Route: 065
     Dates: start: 20110818, end: 20110826
  7. ACYCLOVIR [Concomitant]
     Dosage: 800 MILLIGRAM
     Route: 065
     Dates: start: 20110822
  8. OXYCODONE AND ACETAMINOPHEN [Concomitant]
     Dosage: 15 MILLIGRAM
     Route: 065
     Dates: start: 20110822
  9. REVLIMID [Suspect]
     Dosage: 25 MILLIGRAM
     Route: 048
     Dates: start: 20110830
  10. OMEPRAZOLE [Concomitant]
     Dosage: 20 MILLIGRAM
     Route: 065
     Dates: start: 20110822

REACTIONS (3)
  - DIARRHOEA [None]
  - BLOOD CREATININE INCREASED [None]
  - ELECTROCARDIOGRAM QT PROLONGED [None]
